FAERS Safety Report 15340321 (Version 1)
Quarter: 2018Q3

REPORT INFORMATION
  Report Type: Spontaneous
  Country: US (occurrence: US)
  Receive Date: 20180831
  Receipt Date: 20180831
  Transmission Date: 20181010
  Serious: No
  Sender: FDA-Public Use
  Company Number: US-ENDO PHARMACEUTICALS INC-2018-019863

PATIENT
  Age: 74 Year
  Sex: Male
  Weight: 97.05 kg

DRUGS (3)
  1. SULFAMETHOXAZOLE AND TRIMETHOPRIM [Concomitant]
     Active Substance: SULFAMETHOXAZOLE\TRIMETHOPRIM
     Indication: HERPES ZOSTER
  2. IBUPROFEN. [Suspect]
     Active Substance: IBUPROFEN
     Indication: PAIN
     Dosage: 1 DF, EVERY 6 HOURS
     Route: 048
     Dates: start: 20180220
  3. LIDOCAINE. [Concomitant]
     Active Substance: LIDOCAINE
     Indication: RASH

REACTIONS (2)
  - Gastric disorder [Unknown]
  - Incorrect drug administration duration [Unknown]

NARRATIVE: CASE EVENT DATE: 20180220
